FAERS Safety Report 9087013 (Version 1)
Quarter: 2013Q1

REPORT INFORMATION
  Report Type: Report from Study
  Country: US (occurrence: US)
  Receive Date: 20130201
  Receipt Date: 20130201
  Transmission Date: 20140127
  Serious: No
  Sender: FDA-Public Use
  Company Number: US-ABBOTT-12P-163-1029328-00

PATIENT
  Age: 45 Year
  Sex: Female

DRUGS (10)
  1. HUMIRA [Suspect]
     Indication: CROHN^S DISEASE
     Dates: start: 20121213, end: 20121213
  2. HUMIRA [Suspect]
     Dates: start: 20121227, end: 20121227
  3. SERTRALINE [Concomitant]
     Indication: DEPRESSION
  4. AMLODIPINE [Concomitant]
     Indication: RAYNAUD^S PHENOMENON
     Dosage: DAILY
  5. AMLODIPINE [Concomitant]
     Indication: SCLERODERMA
  6. GABAPENTIN [Concomitant]
     Indication: HEADACHE
  7. DESIPRAMINE [Concomitant]
     Indication: CROHN^S DISEASE
     Dosage: DAILY
  8. HYDROCODONE [Concomitant]
     Indication: PRODUCT USED FOR UNKNOWN INDICATION
     Dosage: 5/325MG, AS NEEDED
  9. HYOSCYAMINE [Concomitant]
     Indication: ABDOMINAL PAIN
  10. MULTIVITAMINS [Concomitant]
     Indication: PRODUCT USED FOR UNKNOWN INDICATION

REACTIONS (6)
  - Fatigue [Not Recovered/Not Resolved]
  - Abdominal pain [Not Recovered/Not Resolved]
  - Diarrhoea [Not Recovered/Not Resolved]
  - Migraine [Not Recovered/Not Resolved]
  - Injection site pain [Not Recovered/Not Resolved]
  - Tinnitus [Not Recovered/Not Resolved]
